FAERS Safety Report 8337678-6 (Version None)
Quarter: 2012Q2

REPORT INFORMATION
  Report Type: 
  Country: None (occurrence: None)
  Receive Date: 20120504
  Receipt Date: 20120504
  Transmission Date: 20120825
  Serious: Yes (Hospitalization, Other)
  Sender: FDA-Public Use
  Company Number: None

PATIENT
  Age: 19 Year
  Sex: Female
  Weight: 61.688 kg

DRUGS (1)
  1. MONISTAT [Suspect]
     Indication: FUNGAL INFECTION
     Dosage: |DOSAGETEXT: I PILL||STRENGTH: 1200 MG||FREQ: ONLY 1||ROUTE: VAGINAL|
     Route: 067
     Dates: start: 20120501, end: 20120501

REACTIONS (2)
  - CRYING [None]
  - APPLICATION SITE PAIN [None]
